FAERS Safety Report 21577104 (Version 2)
Quarter: 2022Q4

REPORT INFORMATION
  Report Type: Spontaneous
  Country: PT (occurrence: PT)
  Receive Date: 20221110
  Receipt Date: 20221125
  Transmission Date: 20230113
  Serious: Yes (Other)
  Sender: FDA-Public Use
  Company Number: PT-009507513-2211PRT002446

PATIENT
  Age: 74 Year
  Sex: Male

DRUGS (4)
  1. KEYTRUDA [Suspect]
     Active Substance: PEMBROLIZUMAB
     Indication: Malignant melanoma stage II
     Dosage: 2MG/KG; 136 MILLIGRAM, EVERY 21 DAYS
     Dates: start: 20220204
  2. KEYTRUDA [Suspect]
     Active Substance: PEMBROLIZUMAB
     Dosage: 2MG/KG; 136 MILLIGRAM, Q3W
     Dates: start: 20220225
  3. AMLODIPINE\OLMESARTAN [Concomitant]
     Active Substance: AMLODIPINE\OLMESARTAN
     Dosage: 5+20 MG AT DINNER
  4. INDAPAMIDE [Concomitant]
     Active Substance: INDAPAMIDE
     Dosage: 1.5 MILLIGRAM, UNDER FASTING

REACTIONS (11)
  - Gastric ulcer [Recovering/Resolving]
  - Hepatic function abnormal [Not Recovered/Not Resolved]
  - Gamma-glutamyltransferase increased [Not Recovered/Not Resolved]
  - Blood alkaline phosphatase increased [Not Recovered/Not Resolved]
  - Gastritis [Recovering/Resolving]
  - Arthralgia [Recovered/Resolved]
  - Biliary cyst [Unknown]
  - Haemangioma [Unknown]
  - Gallbladder polyp [Unknown]
  - Food intolerance [Unknown]
  - Incorrect dose administered [Unknown]

NARRATIVE: CASE EVENT DATE: 20220101
